FAERS Safety Report 9858315 (Version 3)
Quarter: 2014Q1

REPORT INFORMATION
  Report Type: Spontaneous
  Country: AR (occurrence: None)
  Receive Date: 20140129
  Receipt Date: 20140311
  Transmission Date: 20141002
  Serious: Yes (Other)
  Sender: FDA-Public Use
  Company Number: VAL_02954_2014

PATIENT
  Age: 27 Year
  Sex: Female

DRUGS (1)
  1. BASOFORTINA [Suspect]
     Indication: HAEMORRHAGE
     Dosage: DF
     Dates: start: 2010

REACTIONS (3)
  - Haemorrhage [None]
  - Pregnancy [None]
  - Maternal exposure before pregnancy [None]
